FAERS Safety Report 15061407 (Version 1)
Quarter: 2018Q2

REPORT INFORMATION
  Report Type: Spontaneous
  Country: US (occurrence: US)
  Receive Date: 20180605
  Receipt Date: 20180605
  Transmission Date: 20180711
  Serious: Yes (Disabling)
  Sender: FDA-Public Use
  Company Number: None

PATIENT
  Age: 11 Year
  Sex: Female
  Weight: 32.4 kg

DRUGS (4)
  1. MAGNESIUM [Concomitant]
     Active Substance: MAGNESIUM
  2. MELATONIN [Concomitant]
     Active Substance: MELATONIN
  3. MIRALAX [Suspect]
     Active Substance: POLYETHYLENE GLYCOL 3350
     Indication: CONSTIPATION
     Dosage: ?          QUANTITY:1.5 CAPFUL;?
     Route: 048
     Dates: start: 20100615, end: 20180411
  4. TRAZODONE [Concomitant]
     Active Substance: TRAZODONE HYDROCHLORIDE

REACTIONS (3)
  - Anxiety [None]
  - Insomnia [None]
  - Fear [None]
